FAERS Safety Report 4931442-3 (Version None)
Quarter: 2006Q1

REPORT INFORMATION
  Report Type: 
  Country: None (occurrence: None)
  Receive Date: 20060228
  Receipt Date: 20060220
  Transmission Date: 20060701
  Serious: Yes (Other)
  Sender: FDA-Public Use
  Company Number: 230041M06USA

PATIENT
  Age: 25 Year
  Sex: Female

DRUGS (2)
  1. REBIF [Suspect]
     Indication: MULTIPLE SCLEROSIS
     Dosage: 44 MCG, 3 IN 1 WEEKS, SUBCUTANEOUS
     Route: 058
     Dates: start: 20050101
  2. STEROIDS (CORTICOSTEROID NOS) [Concomitant]

REACTIONS (7)
  - ASTHENIA [None]
  - BILIRUBIN URINE [None]
  - CHOLELITHIASIS [None]
  - EPISTAXIS [None]
  - HEADACHE [None]
  - INJECTION SITE REACTION [None]
  - PANCREATITIS ACUTE [None]
